FAERS Safety Report 13218709 (Version 1)
Quarter: 2017Q1

REPORT INFORMATION
  Report Type: Other
  Country: US (occurrence: US)
  Receive Date: 20170210
  Receipt Date: 20170210
  Transmission Date: 20170428
  Serious: No
  Sender: FDA-Public Use
  Company Number: US-ACORDA-ACO_126407_2016

PATIENT
  Age: 45 Year
  Sex: Male

DRUGS (3)
  1. VITAMIN B6 [Suspect]
     Active Substance: PYRIDOXINE HYDROCHLORIDE
     Indication: PRODUCT USED FOR UNKNOWN INDICATION
     Dosage: UNK
     Route: 065
  2. AMPYRA [Suspect]
     Active Substance: DALFAMPRIDINE
     Indication: MULTIPLE SCLEROSIS
     Dosage: 10 MG, BID
     Route: 048
     Dates: start: 20160106, end: 20160606
  3. AMPYRA [Suspect]
     Active Substance: DALFAMPRIDINE
     Dosage: 10 MG, Q 12 HRS
     Route: 048
     Dates: start: 20160716

REACTIONS (5)
  - Vitamin B6 increased [Unknown]
  - Blood follicle stimulating hormone increased [Unknown]
  - Drug ineffective [Unknown]
  - Blood luteinising hormone increased [Unknown]
  - Blood testosterone [Unknown]

NARRATIVE: CASE EVENT DATE: 20160623
